FAERS Safety Report 9096816 (Version 1)
Quarter: 2013Q1

REPORT INFORMATION
  Report Type: Spontaneous
  Country: US (occurrence: None)
  Receive Date: 20130124
  Receipt Date: 20130124
  Transmission Date: 20140127
  Serious: Yes (Hospitalization)
  Sender: FDA-Public Use
  Company Number: 2013ST000016

PATIENT
  Age: 75 Year
  Sex: Male

DRUGS (16)
  1. OMEPRAZOLE [Suspect]
     Indication: PRODUCT USED FOR UNKNOWN INDICATION
     Route: 048
  2. BORTEZOMIB [Suspect]
     Indication: PLASMA CELL MYELOMA
     Route: 042
  3. AMLODIPINE [Concomitant]
  4. ASPIRIN [Concomitant]
  5. ATENOLOL [Concomitant]
  6. AMIODARONE [Concomitant]
  7. CIPROFLOXACIN [Concomitant]
  8. DEXAMETHASONE [Concomitant]
  9. FERROUS SULFATE [Concomitant]
  10. FLUCONAZOLE [Concomitant]
  11. FOLIC ACID [Concomitant]
  12. HYDROCHLOROTHIAZIDE [Concomitant]
  13. POTASSIUM [Concomitant]
  14. PRAZOSIN [Concomitant]
  15. SIMVASTATIN [Concomitant]
  16. CHOLECALCIFEROL [Concomitant]

REACTIONS (18)
  - Dizziness [None]
  - Tremor [None]
  - Urine output decreased [None]
  - Blood creatinine increased [None]
  - Blood urea increased [None]
  - Abasia [None]
  - Orthostatic hypotension [None]
  - Peripheral coldness [None]
  - Peripheral sensory neuropathy [None]
  - Hypoaesthesia [None]
  - Drug interaction [None]
  - Syncope [None]
  - Monoclonal immunoglobulin present [None]
  - Autonomic neuropathy [None]
  - Dehydration [None]
  - Neurotoxicity [None]
  - Decreased appetite [None]
  - Decreased appetite [None]
